FAERS Safety Report 13579546 (Version 1)
Quarter: 2017Q2

REPORT INFORMATION
  Report Type: Spontaneous
  Country: US (occurrence: US)
  Receive Date: 20170524
  Receipt Date: 20170524
  Transmission Date: 20170830
  Serious: Yes (Other)
  Sender: FDA-Public Use
  Company Number: None

PATIENT
  Age: 19 Year
  Sex: Female
  Weight: 69.75 kg

DRUGS (1)
  1. NEXPLANON [Suspect]
     Active Substance: ETONOGESTREL
     Indication: CONTRACEPTION
     Route: 058
     Dates: start: 20170209, end: 20170522

REACTIONS (7)
  - Weight decreased [None]
  - Anxiety [None]
  - Depression [None]
  - Headache [None]
  - Pain in extremity [None]
  - Haemorrhage [None]
  - Panic attack [None]

NARRATIVE: CASE EVENT DATE: 20170209
